FAERS Safety Report 6165121-4 (Version None)
Quarter: 2009Q2

REPORT INFORMATION
  Report Type: 
  Country: None (occurrence: None)
  Receive Date: 20090421
  Receipt Date: 20090406
  Transmission Date: 20091009
  Serious: Yes (Other)
  Sender: FDA-Public Use
  Company Number: 2009S1005925

PATIENT
  Age: 73 Year
  Sex: Female

DRUGS (5)
  1. LINEZOLID [Suspect]
     Indication: OSTEOMYELITIS
     Dosage: 600 MG; Q12H;
  2. FLUOXETINE [Suspect]
     Indication: DEPRESSION
     Dosage: 20 MG; DAILY;
  3. TRAMADOL HCL [Suspect]
     Indication: ANALGESIA
     Dosage: 50 MG; Q8H
  4. FENTANYL-100 [Suspect]
     Indication: ANALGESIA
     Dosage: 25 UG; EVERY HOUR; TRANSDERMAL
     Route: 062
  5. PARACETAMOL (CON.) [Concomitant]

REACTIONS (1)
  - SEROTONIN SYNDROME [None]
